FAERS Safety Report 21217249 (Version 4)
Quarter: 2023Q2

REPORT INFORMATION
  Report Type: Spontaneous
  Country: US (occurrence: US)
  Receive Date: 20220816
  Receipt Date: 20230405
  Transmission Date: 20230722
  Serious: Yes (Hospitalization, Other)
  Sender: FDA-Public Use
  Company Number: US-AURINIA PHARMACEUTICALS INC.-AUR-002112

PATIENT
  Age: 22 Year
  Sex: Female

DRUGS (2)
  1. LUPKYNIS [Suspect]
     Active Substance: VOCLOSPORIN
     Indication: Lupus nephritis
     Dosage: 23.7 MILLIGRAM, BID
     Route: 048
     Dates: start: 20220301
  2. LUPKYNIS [Suspect]
     Active Substance: VOCLOSPORIN
     Dosage: 23.7 MILLIGRAM, BID
     Route: 048
     Dates: start: 20221010

REACTIONS (7)
  - Generalised oedema [Unknown]
  - Renal disorder [Unknown]
  - Systemic lupus erythematosus [Unknown]
  - Biopsy kidney [Unknown]
  - Muscular weakness [Unknown]
  - Swelling [Unknown]
  - Absence of immediate treatment response [Unknown]

NARRATIVE: CASE EVENT DATE: 20220701
